FAERS Safety Report 6127738-2 (Version None)
Quarter: 2009Q1

REPORT INFORMATION
  Report Type: 
  Country: None (occurrence: None)
  Receive Date: 20090323
  Receipt Date: 20090309
  Transmission Date: 20090719
  Serious: Yes (Death, Congenital Anomaly)
  Sender: FDA-Public Use
  Company Number: DE-JNJFOC-20090304282

PATIENT
  Sex: Male
  Weight: 0.75 kg

DRUGS (2)
  1. NIZORAL [Suspect]
     Indication: DRUG EXPOSURE DURING PREGNANCY
     Route: 064
     Dates: end: 19940726
  2. ZYRTEC [Suspect]
     Indication: DRUG EXPOSURE DURING PREGNANCY
     Route: 048
     Dates: end: 19940726

REACTIONS (2)
  - FOETAL GROWTH RETARDATION [None]
  - PREMATURE BABY [None]
